FAERS Safety Report 20609634 (Version 3)
Quarter: 2022Q4

REPORT INFORMATION
  Report Type: Report from Study
  Country: JP (occurrence: JP)
  Receive Date: 20220318
  Receipt Date: 20221107
  Transmission Date: 20230113
  Serious: Yes (Hospitalization)
  Sender: FDA-Public Use
  Company Number: JP-JNJFOC-20220326279

PATIENT
  Age: 76 Year
  Sex: Female

DRUGS (10)
  1. BOSENTAN [Suspect]
     Active Substance: BOSENTAN
     Indication: Skin ulcer
     Route: 048
     Dates: start: 20200513, end: 20200728
  2. BERAPROST SODIUM [Suspect]
     Active Substance: BERAPROST SODIUM
     Indication: Skin ulcer
     Route: 048
     Dates: start: 20200512, end: 20200728
  3. URSODIOL [Concomitant]
     Active Substance: URSODIOL
     Indication: Primary biliary cholangitis
     Route: 048
  4. CALONAL [Concomitant]
     Active Substance: ACETAMINOPHEN
     Indication: Skin ulcer
     Route: 048
     Dates: start: 20200512, end: 20200623
  5. TRAMADOL [Concomitant]
     Active Substance: TRAMADOL
     Indication: Skin ulcer
     Route: 048
     Dates: start: 20200515, end: 20200618
  6. ROZEREM [Concomitant]
     Active Substance: RAMELTEON
     Indication: Insomnia
     Route: 048
     Dates: start: 20200515
  7. CEFACLOR [Concomitant]
     Active Substance: CEFACLOR
     Indication: Infection prophylaxis
     Route: 048
     Dates: start: 20200511, end: 20200521
  8. EDOXABAN TOSYLATE [Concomitant]
     Active Substance: EDOXABAN TOSYLATE
     Indication: Embolism venous
     Route: 048
     Dates: start: 20200602
  9. ALPROSTADIL [Concomitant]
     Active Substance: ALPROSTADIL
     Indication: Skin ulcer
     Route: 042
     Dates: start: 20200511, end: 20200526
  10. ADCIRCA [Concomitant]
     Active Substance: TADALAFIL
     Indication: Skin ulcer
     Route: 048
     Dates: start: 20200528

REACTIONS (2)
  - Right ventricular failure [Recovered/Resolved]
  - Anaemia [Recovered/Resolved]

NARRATIVE: CASE EVENT DATE: 20200728
